FAERS Safety Report 7882446-2 (Version None)
Quarter: 2011Q4

REPORT INFORMATION
  Report Type: 
  Country: None (occurrence: None)
  Receive Date: 20111101
  Receipt Date: 20110615
  Transmission Date: 20120403
  Serious: No
  Sender: FDA-Public Use
  Company Number: US-AMGEN-USASP2011029364

PATIENT
  Sex: Female

DRUGS (37)
  1. NEXIUM [Concomitant]
  2. OSCAL                              /00108001/ [Concomitant]
  3. CLOBETASOL [Concomitant]
  4. PATADAY EYE DROPS [Concomitant]
  5. NEORAL [Concomitant]
  6. PREDNISONE [Concomitant]
  7. ZOFRAN [Concomitant]
  8. FLONASE [Concomitant]
  9. DIPROLENE OINTMENT [Concomitant]
  10. ENBREL [Suspect]
     Indication: ANKYLOSING SPONDYLITIS
     Dosage: 50 MG, QWK
     Dates: start: 20110301
  11. PREDNISONE [Concomitant]
     Dosage: UNK
  12. TRAMADOL HCL [Concomitant]
     Dosage: UNK
  13. EPIPEN [Concomitant]
  14. ALLEGRA [Concomitant]
  15. CORTEF TABS [Concomitant]
  16. VITAMIN D [Concomitant]
  17. ELIDEL [Concomitant]
  18. HIVENTRA [Concomitant]
  19. DIGOXIN [Concomitant]
  20. SINGULAIR [Concomitant]
  21. LOESTRIN 1.5/30 [Concomitant]
  22. NAPROXEN [Concomitant]
  23. VICODIN [Concomitant]
  24. METHOCARBAMOL [Concomitant]
  25. PREDNISONE [Concomitant]
  26. TRAMADOL HCL [Concomitant]
  27. FORADIL [Concomitant]
  28. ZOLOFT [Concomitant]
  29. SULFADINE EC [Concomitant]
  30. PROTOPIC                           /01219901/ [Concomitant]
  31. LIDODERM OINTMENT [Concomitant]
  32. TRIAMCINOLONE [Concomitant]
  33. ASTELIN                            /00085801/ [Concomitant]
  34. TRAMADOL HCL [Concomitant]
  35. ZOPANEX [Concomitant]
  36. ALVESCO [Concomitant]
  37. IMITREX [Concomitant]

REACTIONS (1)
  - SKIN DISCOMFORT [None]
